FAERS Safety Report 13775788 (Version 2)
Quarter: 2017Q3

REPORT INFORMATION
  Report Type: Spontaneous
  Country: FR (occurrence: FR)
  Receive Date: 20170721
  Receipt Date: 20170821
  Transmission Date: 20171127
  Serious: Yes (Life-Threatening, Hospitalization)
  Sender: FDA-Public Use
  Company Number: FR-TEVA-787952ROM

PATIENT
  Age: 55 Year
  Sex: Male
  Weight: 63 kg

DRUGS (9)
  1. ZOPHREN [Concomitant]
     Active Substance: ONDANSETRON
     Indication: GASTRIC CANCER
     Dosage: FIRST DAY OF THE FIRST CHEMOTHERAPY COURSE OF FLOT PROTOCOL
     Route: 042
     Dates: start: 20170622, end: 20170622
  2. DOCETAXEL KABI [Concomitant]
     Active Substance: DOCETAXEL
     Dosage: DAY 15 OF FLOT PROTOCOL
     Route: 042
     Dates: start: 20170706, end: 20170706
  3. ZOPHREN [Concomitant]
     Active Substance: ONDANSETRON
     Dosage: DAY 15 OF FLOT PROTOCOL
     Route: 042
     Dates: start: 20170706, end: 20170706
  4. ELVORINE [Concomitant]
     Active Substance: LEUCOVORIN CALCIUM
     Indication: GASTRIC CANCER
     Dosage: FIRST DAY OF THE FIRST CHEMOTHERAPY COURSE OF FLOT PROTOCOL
     Route: 042
     Dates: start: 20170622, end: 20170622
  5. ELVORINE [Concomitant]
     Active Substance: LEUCOVORIN CALCIUM
     Dosage: DAY 15 OF FLOT PROTOCOL
     Route: 042
     Dates: start: 20170706, end: 20170706
  6. DOCETAXEL KABI [Concomitant]
     Active Substance: DOCETAXEL
     Indication: GASTRIC CANCER
     Dosage: FIRST DAY OF THE FIRST CHEMOTHERAPY COURSE OF FLOT PROTOCOL
     Route: 042
     Dates: start: 20170622, end: 20170622
  7. SOLU-MEDROL [Concomitant]
     Active Substance: METHYLPREDNISOLONE SODIUM SUCCINATE
     Indication: GASTRIC CANCER
     Route: 042
     Dates: start: 20170622
  8. OXALIPLATINE TEVA 5 MG/ML [Suspect]
     Active Substance: OXALIPLATIN
     Indication: GASTRIC CANCER
     Dosage: FIRST DAY OF THE FIRST CHEMOTHERAPY COURSE OF FLOT PROTOCOL
     Route: 041
     Dates: start: 20170622, end: 20170622
  9. OXALIPLATINE TEVA 5 MG/ML [Suspect]
     Active Substance: OXALIPLATIN
     Dosage: DAY 15 OF FLOT PROTOCOL
     Route: 041
     Dates: start: 20170706, end: 20170706

REACTIONS (4)
  - Erythema [Recovered/Resolved]
  - Rash [Recovered/Resolved]
  - Lip pain [Recovered/Resolved]
  - Paraesthesia [Recovered/Resolved]

NARRATIVE: CASE EVENT DATE: 20170706
